FAERS Safety Report 7505765-8 (Version None)
Quarter: 2011Q2

REPORT INFORMATION
  Report Type: 
  Country: None (occurrence: None)
  Receive Date: 20110526
  Receipt Date: 20110520
  Transmission Date: 20111010
  Serious: Yes (Hospitalization)
  Sender: FDA-Public Use
  Company Number: US-ALEXION-A201100579

PATIENT
  Sex: Male

DRUGS (14)
  1. SOLIRIS [Suspect]
     Indication: PAROXYSMAL NOCTURNAL HAEMOGLOBINURIA
     Dosage: UNK
     Route: 042
     Dates: start: 20101001, end: 20110316
  2. REGULAR INSULIN [Concomitant]
     Dosage: 5 UNITS, QAM
     Route: 058
  3. FLOMAX [Concomitant]
     Dosage: UNK, QD
  4. FOLIC ACID [Concomitant]
     Dosage: 1 MG, QD
     Route: 048
  5. METFORMIN HCL [Concomitant]
     Dosage: 500 MG, QD
     Route: 048
  6. NORCO [Concomitant]
     Indication: BACK PAIN
     Dosage: 1 TAB, Q4HR, PRN
  7. LUPRON [Concomitant]
     Indication: PROSTATE CANCER
  8. PRILOSEC [Concomitant]
     Dosage: 10 MG, QD
     Route: 048
  9. ENALAPRIL MALEATE [Concomitant]
     Dosage: 20 MG, QD
     Route: 048
  10. PREDNISONE [Concomitant]
     Indication: PAROXYSMAL NOCTURNAL HAEMOGLOBINURIA
     Dosage: 60 MG, QD
  11. PAXIL [Concomitant]
     Dosage: 20 MG, QD
     Route: 048
  12. XANAX [Concomitant]
     Dosage: .5 MG, QD
  13. LANTUS [Concomitant]
     Dosage: 15 UNITS, QHS
     Route: 058
  14. LANTUS [Concomitant]
     Dosage: 10 UNITS, QHS
     Route: 058

REACTIONS (8)
  - BLADDER CANCER [None]
  - DEEP VEIN THROMBOSIS [None]
  - PAROXYSMAL NOCTURNAL HAEMOGLOBINURIA [None]
  - CONDITION AGGRAVATED [None]
  - RENAL FAILURE ACUTE [None]
  - NO THERAPEUTIC RESPONSE [None]
  - HAEMOLYTIC ANAEMIA [None]
  - ABDOMINAL PAIN [None]
